FAERS Safety Report 9409382 (Version 1)
Quarter: 2013Q3

REPORT INFORMATION
  Report Type: Report from Study
  Country: CA (occurrence: CA)
  Receive Date: 20130719
  Receipt Date: 20130719
  Transmission Date: 20140515
  Serious: Yes (Other)
  Sender: FDA-Public Use
  Company Number: CA-JNJFOC-20130710287

PATIENT
  Age: 51 Year
  Sex: Male

DRUGS (1)
  1. REMICADE [Suspect]
     Indication: PSORIASIS
     Dosage: DOSAGE: EVERY 0,2,6 (UNSPECIFIED INTERVAL)
     Route: 042
     Dates: start: 20130530

REACTIONS (1)
  - Gout [Unknown]
